FAERS Safety Report 18318616 (Version 1)
Quarter: 2020Q3

REPORT INFORMATION
  Report Type: Spontaneous
  Country: US (occurrence: US)
  Receive Date: 20200927
  Receipt Date: 20200927
  Transmission Date: 20201103
  Serious: Yes (Other)
  Sender: FDA-Public Use
  Company Number: None

PATIENT
  Age: 41 Year
  Sex: Female
  Weight: 146.25 kg

DRUGS (1)
  1. GABAPENTIN. [Suspect]
     Active Substance: GABAPENTIN
     Indication: PROCEDURAL PAIN
     Dosage: ?          QUANTITY:1 TABLET(S);?
     Route: 048
     Dates: start: 20200920, end: 20200927

REACTIONS (5)
  - Nausea [None]
  - Dyspnoea [None]
  - Palpitations [None]
  - Muscular weakness [None]
  - Chest discomfort [None]

NARRATIVE: CASE EVENT DATE: 20200927
